FAERS Safety Report 15935555 (Version 1)
Quarter: 2019Q1

REPORT INFORMATION
  Report Type: Spontaneous
  Country: US (occurrence: US)
  Receive Date: 20190208
  Receipt Date: 20190208
  Transmission Date: 20190417
  Serious: No
  Sender: FDA-Public Use
  Company Number: US-AMGEN INC.-USASP2019019059

PATIENT
  Age: 33 Year
  Sex: Female
  Weight: 38.55 kg

DRUGS (1)
  1. AIMOVIG [Suspect]
     Active Substance: ERENUMAB-AOOE
     Indication: MIGRAINE PROPHYLAXIS
     Dosage: UNK
     Route: 058

REACTIONS (3)
  - Wrong technique in product usage process [Unknown]
  - Accident [Recovering/Resolving]
  - Concussion [Recovering/Resolving]
